FAERS Safety Report 4486625-6 (Version None)
Quarter: 2004Q4

REPORT INFORMATION
  Report Type: 
  Country: None (occurrence: None)
  Receive Date: 20041027
  Receipt Date: 20040921
  Transmission Date: 20050328
  Serious: Yes (Other)
  Sender: FDA-Public Use
  Company Number: PHBS2004JP12693

PATIENT
  Age: 54 Year
  Sex: Female
  Weight: 50 kg

DRUGS (9)
  1. DIOVAN [Suspect]
     Dosage: 80 MG, QD
     Route: 048
     Dates: start: 20040906, end: 20040913
  2. CRAVIT [Suspect]
     Indication: VOMITING
     Dosage: 300 MG, QD
     Route: 048
     Dates: start: 20040906, end: 20040908
  3. NEUZYM [Concomitant]
     Dosage: 270 MG, UNK
     Route: 048
     Dates: start: 20040906, end: 20040908
  4. LEBENIN [Concomitant]
     Dosage: 2 G, UNK
     Route: 048
     Dates: start: 20040906, end: 20040908
  5. GANATON [Concomitant]
     Dosage: 150 MG, UNK
     Route: 048
     Dates: start: 20040906, end: 20040908
  6. SOLITA-T3 INJECTION [Concomitant]
     Dosage: 2 DF, UNK
     Dates: start: 20040906, end: 20040908
  7. PENTCILLIN [Concomitant]
     Dosage: 1 G, UNK
     Route: 042
     Dates: start: 20040906, end: 20040907
  8. RINGER [Concomitant]
     Dosage: 500 ML, UNK
     Route: 042
     Dates: start: 20040906, end: 20040907
  9. NORVASC [Suspect]
     Indication: ESSENTIAL HYPERTENSION
     Dosage: 5 MG, QD
     Route: 048
     Dates: start: 20040915, end: 20040921

REACTIONS (5)
  - CONJUNCTIVAL HAEMORRHAGE [None]
  - ERYTHEMA [None]
  - EYE REDNESS [None]
  - OEDEMA PERIPHERAL [None]
  - PAIN [None]
